FAERS Safety Report 8188972-3 (Version None)
Quarter: 2012Q1

REPORT INFORMATION
  Report Type: 
  Country: None (occurrence: None)
  Receive Date: 20120307
  Receipt Date: 20120222
  Transmission Date: 20120608
  Serious: Yes (Other)
  Sender: FDA-Public Use
  Company Number: US-JNJCP-30000092297

PATIENT
  Age: 83 Year
  Sex: Male
  Weight: 73 kg

DRUGS (3)
  1. AVEENO DAILY MOISTURIZING LTN 12OZ PUMP USA 8137003600 8137003600USA [Suspect]
     Indication: DRY SKIN
     Dosage: SIXTEEN PUMPS, ONCE A DAY
     Route: 061
     Dates: end: 20120221
  2. AVODART [Concomitant]
     Dosage: 50 MG ONCE A DAY SINCE NINE YEARS
  3. AVAPRO [Concomitant]
     Indication: HYPERTENSION
     Dosage: 150 MG ONCE A DAY SINCE NINE YEARS

REACTIONS (3)
  - FLATULENCE [None]
  - BLOOD PRESSURE INCREASED [None]
  - DIZZINESS [None]
